FAERS Safety Report 7378912-9 (Version None)
Quarter: 2011Q1

REPORT INFORMATION
  Report Type: 
  Country: None (occurrence: None)
  Receive Date: 20110328
  Receipt Date: 20110318
  Transmission Date: 20110831
  Serious: Yes (Hospitalization)
  Sender: FDA-Public Use
  Company Number: US-ASTRAZENECA-2011SE10875

PATIENT
  Age: 570 Month
  Sex: Male

DRUGS (11)
  1. SEROQUEL [Suspect]
     Indication: PANIC ATTACK
     Route: 048
     Dates: start: 20060101
  2. SEROQUEL [Suspect]
     Route: 048
     Dates: start: 20100913
  3. SEROQUEL [Suspect]
     Route: 048
     Dates: start: 20100606
  4. SEROQUEL [Suspect]
     Route: 048
     Dates: start: 20100606
  5. PROTONIX [Concomitant]
  6. PAIN PILL [Concomitant]
  7. SEROQUEL [Suspect]
     Indication: MAJOR DEPRESSION
     Route: 048
     Dates: start: 20060101
  8. SEROQUEL [Suspect]
     Route: 048
     Dates: start: 20100913
  9. LEXAPRO [Concomitant]
     Dosage: 20 DAILY
     Dates: end: 20101201
  10. STOOL SOFTENER [Concomitant]
  11. CELEXA [Concomitant]
     Dates: start: 20101201

REACTIONS (7)
  - UPPER LIMB FRACTURE [None]
  - FEMUR FRACTURE [None]
  - ROAD TRAFFIC ACCIDENT [None]
  - HIP FRACTURE [None]
  - WEIGHT DECREASED [None]
  - BEDRIDDEN [None]
  - LOWER LIMB FRACTURE [None]
